FAERS Safety Report 13500885 (Version 2)
Quarter: 2017Q3

REPORT INFORMATION
  Report Type: Spontaneous
  Country: US (occurrence: US)
  Receive Date: 20170501
  Receipt Date: 20170809
  Transmission Date: 20171127
  Serious: Yes (Death, Other)
  Sender: FDA-Public Use
  Company Number: US-ROCHE-1835178

PATIENT
  Age: 43 Year
  Sex: Male

DRUGS (18)
  1. ACETAMINOPHEN. [Concomitant]
     Active Substance: ACETAMINOPHEN
     Dosage: 650 UNIT NOT REPORETED.
     Route: 048
  2. AZITHROMYCIN ANHYDROUS. [Concomitant]
     Active Substance: AZITHROMYCIN ANHYDROUS
     Dosage: FOR 3 DAYS
     Route: 048
  3. IMODIUM A-D [Concomitant]
     Active Substance: LOPERAMIDE HYDROCHLORIDE
  4. TYLENOL [Concomitant]
     Active Substance: ACETAMINOPHEN
     Dosage: 8 HOUR
     Route: 065
  5. OXYBUTYNIN CHLORIDE ER [Concomitant]
     Active Substance: OXYBUTYNIN CHLORIDE
  6. SIMVASTATIN. [Concomitant]
     Active Substance: SIMVASTATIN
  7. DOCUSATE SODIUM. [Concomitant]
     Active Substance: DOCUSATE SODIUM
     Dosage: 100 UUNIT NOT REPORTED
     Route: 048
  8. GLIPIZIDE. [Concomitant]
     Active Substance: GLIPIZIDE
     Dosage: 5 UNIT NOT REPORTED
     Route: 048
  9. ATIVAN [Concomitant]
     Active Substance: LORAZEPAM
  10. ASPIRIN EC [Concomitant]
     Active Substance: ASPIRIN
     Dosage: 81 UNIT NOT REPORTED.
     Route: 048
  11. CEFUROXIME AXETIL. [Concomitant]
     Active Substance: CEFUROXIME AXETIL
     Dosage: FOR 1 WEEK
     Route: 048
  12. FISH OIL [Concomitant]
     Active Substance: FISH OIL
  13. CLONAZEPAM. [Suspect]
     Active Substance: CLONAZEPAM
     Indication: PRODUCT USED FOR UNKNOWN INDICATION
     Dosage: 1 ORALLY EVERY EVENING
     Route: 048
  14. CLOZARIL [Concomitant]
     Active Substance: CLOZAPINE
  15. VITAMIN D3 [Concomitant]
     Active Substance: CHOLECALCIFEROL
  16. LISINOPRIL. [Concomitant]
     Active Substance: LISINOPRIL
     Dosage: 5 UNIT NOT REPORTED.
     Route: 065
  17. RANITIDINE HCL [Concomitant]
     Active Substance: RANITIDINE HYDROCHLORIDE
     Dosage: 150 UNIT NOT REPORTED.
     Route: 048
  18. ESBRIET [Suspect]
     Active Substance: PIRFENIDONE
     Indication: IDIOPATHIC PULMONARY FIBROSIS
     Dosage: 2 FILL
     Route: 048
     Dates: start: 20160705

REACTIONS (5)
  - Bronchitis [Unknown]
  - Pneumonia [Unknown]
  - Hypoxia [Unknown]
  - Dyspnoea [Unknown]
  - Death [Fatal]

NARRATIVE: CASE EVENT DATE: 20160818
